FAERS Safety Report 6491741-3 (Version None)
Quarter: 2009Q4

REPORT INFORMATION
  Report Type: 
  Country: None (occurrence: None)
  Receive Date: 20091208
  Receipt Date: 20091125
  Transmission Date: 20100525
  Serious: Yes (Life-Threatening)
  Sender: FDA-Public Use
  Company Number: DSJ-2009-14494

PATIENT
  Age: 63 Year
  Sex: Female

DRUGS (2)
  1. OLMETEC  (OLMESARTAN MEDOXOMIL [Suspect]
     Indication: HYPERTENSION
  2. DEPAS          (ETIZOLAM) [Suspect]
     Indication: INSOMNIA

REACTIONS (6)
  - BRAIN OEDEMA [None]
  - HAEMODIALYSIS [None]
  - HYPONATRAEMIA [None]
  - NEUROLEPTIC MALIGNANT SYNDROME [None]
  - OLIGURIA [None]
  - WATER INTOXICATION [None]
